FAERS Safety Report 24026089 (Version 2)
Quarter: 2024Q3

REPORT INFORMATION
  Report Type: Report from Study
  Country: AT (occurrence: AT)
  Receive Date: 20240628
  Receipt Date: 20240710
  Transmission Date: 20241017
  Serious: No
  Sender: ROCHE
  Company Number: AT-ROCHE-3513387

PATIENT
  Age: 57 Year
  Sex: Female
  Weight: 69.0 kg

DRUGS (5)
  1. ALECTINIB [Suspect]
     Active Substance: ALECTINIB
     Indication: Non-small cell lung cancer metastatic
     Route: 048
     Dates: start: 20220624
  2. ALECTINIB [Suspect]
     Active Substance: ALECTINIB
     Route: 048
     Dates: start: 20190626
  3. GENTAX [Concomitant]
     Indication: Dry eye
     Route: 047
     Dates: start: 20220506
  4. EUTHYROX [Concomitant]
     Active Substance: LEVOTHYROXINE SODIUM
     Indication: Hypothyroidism
     Dosage: 75MCG 1 TABLET
     Route: 048
     Dates: start: 20220120
  5. EUTHYROX [Concomitant]
     Active Substance: LEVOTHYROXINE SODIUM
     Dosage: 50MCG 1 TABLET
     Route: 048
     Dates: start: 20210318

REACTIONS (1)
  - Myalgia [Unknown]

NARRATIVE: CASE EVENT DATE: 20240119
